FAERS Safety Report 24120237 (Version 1)
Quarter: 2024Q3

REPORT INFORMATION
  Report Type: Spontaneous
  Country: RU (occurrence: RU)
  Receive Date: 20240722
  Receipt Date: 20240722
  Transmission Date: 20241016
  Serious: Yes (Death, Other)
  Sender: ELI LILLY AND CO
  Company Number: RU-ELI_LILLY_AND_COMPANY-RU202407012432

PATIENT
  Age: 47 Year
  Sex: Female

DRUGS (4)
  1. RAMUCIRUMAB [Suspect]
     Active Substance: RAMUCIRUMAB
     Indication: Gastric cancer
     Dosage: UNK UNK, CYCLICAL (8 MG /KG - 448.0 MG IN THE 1ST; CYCLE OF 28 DAYS, 8 MG /KG ON THE 1ST, 15TH DAYS)
     Route: 065
     Dates: start: 20210412, end: 20240201
  2. RAMUCIRUMAB [Suspect]
     Active Substance: RAMUCIRUMAB
     Dosage: UNK UNK, CYCLICAL (6 MG /KG -348 MG ON DAYS 1, 15; CYCLE 28 DAYS)
     Route: 065
     Dates: start: 20220215, end: 20220414
  3. PACLITAXEL [Suspect]
     Active Substance: PACLITAXEL
     Indication: Gastric cancer
     Dosage: UNK UNK, CYCLICAL (80 MG/M 2 - 120.0 MG ON DAY 1, 80 MG/ M2 SCHEME ON THE 1ST, 8TH, 15TH DAYS)
     Route: 065
     Dates: start: 20210412, end: 20220201
  4. PACLITAXEL [Suspect]
     Active Substance: PACLITAXEL
     Dosage: UNK UNK, CYCLICAL (60 MG / M2 - 94 MG ON DAY 1, 8, 15)
     Route: 065
     Dates: start: 20220215, end: 20220414

REACTIONS (3)
  - Death [Fatal]
  - Hypertension [Unknown]
  - Neuropathy peripheral [Unknown]

NARRATIVE: CASE EVENT DATE: 20220901
